FAERS Safety Report 24257492 (Version 1)
Quarter: 2024Q3

REPORT INFORMATION
  Report Type: Spontaneous
  Country: NL (occurrence: NL)
  Receive Date: 20240828
  Receipt Date: 20240828
  Transmission Date: 20241017
  Serious: Yes (Death, Hospitalization)
  Sender: STRIDES
  Company Number: NL-STRIDES ARCOLAB LIMITED-2024SP010702

PATIENT
  Age: 64 Year
  Sex: Male

DRUGS (5)
  1. TENOFOVIR DISOPROXIL FUMARATE [Suspect]
     Active Substance: TENOFOVIR DISOPROXIL FUMARATE
     Indication: Chronic hepatitis B
     Dosage: UNK (TENOFOVIR-DISOPROXIL-FUMARATE)
     Route: 065
  2. TENOFOVIR DISOPROXIL FUMARATE [Suspect]
     Active Substance: TENOFOVIR DISOPROXIL FUMARATE
     Indication: Hepatitis B reactivation
     Dosage: UNK (TENOFOVIR)
     Route: 065
  3. TENOFOVIR DISOPROXIL FUMARATE [Suspect]
     Active Substance: TENOFOVIR DISOPROXIL FUMARATE
     Dosage: UNK (TENOFOVIR RESTARTED)
     Route: 065
  4. HEPATECT [Concomitant]
     Active Substance: HUMAN HEPATITIS B VIRUS IMMUNE GLOBULIN
     Indication: Antiviral prophylaxis
     Dosage: 5000 INTERNATIONAL UNIT, QD (5000?IE/DAY)
     Route: 065
  5. ENTECAVIR [Concomitant]
     Active Substance: ENTECAVIR
     Indication: Chronic hepatitis B
     Dosage: UNK
     Route: 065

REACTIONS (8)
  - Rebound effect [Fatal]
  - Hepatitis B reactivation [Fatal]
  - Shock haemorrhagic [Fatal]
  - Pancreatitis necrotising [Fatal]
  - Multiple organ dysfunction syndrome [Fatal]
  - Acute hepatic failure [Fatal]
  - Condition aggravated [Fatal]
  - Drug ineffective [Fatal]
